FAERS Safety Report 20305957 (Version 4)
Quarter: 2022Q2

REPORT INFORMATION
  Report Type: Report from Study
  Country: US (occurrence: US)
  Receive Date: 20220106
  Receipt Date: 20220408
  Transmission Date: 20220721
  Serious: Yes (Hospitalization, Other)
  Sender: FDA-Public Use
  Company Number: US-BRISTOL-MYERS SQUIBB COMPANY-BMS-2022-001036

PATIENT
  Age: 78 Year
  Sex: Male

DRUGS (2)
  1. NIVOLUMAB [Suspect]
     Active Substance: NIVOLUMAB
     Indication: Malignant melanoma
     Dosage: UNK
     Route: 042
     Dates: start: 20210402, end: 20211210
  2. AXITINIB [Suspect]
     Active Substance: AXITINIB
     Indication: Malignant melanoma
     Dosage: UNK
     Route: 048
     Dates: start: 20210402, end: 20211224

REACTIONS (2)
  - Abdominal distension [Recovered/Resolved]
  - Lyme disease [Unknown]

NARRATIVE: CASE EVENT DATE: 20220101
